FAERS Safety Report 25086626 (Version 2)
Quarter: 2025Q1

REPORT INFORMATION
  Report Type: Spontaneous
  Country: US (occurrence: US)
  Receive Date: 20250317
  Receipt Date: 20250327
  Transmission Date: 20250408
  Serious: No
  Sender: SANDOZ
  Company Number: US-SANDOZ-SDZ2025US016174

PATIENT
  Sex: Female

DRUGS (1)
  1. AMITRIPTYLINE HYDROCHLORIDE [Suspect]
     Active Substance: AMITRIPTYLINE HYDROCHLORIDE
     Indication: Product used for unknown indication
     Route: 065

REACTIONS (7)
  - Urticaria [Unknown]
  - Skin burning sensation [Unknown]
  - Rash macular [Unknown]
  - Therapy change [Unknown]
  - Swelling face [Unknown]
  - Anxiety [Unknown]
  - Depression [Unknown]
